FAERS Safety Report 6740640-8 (Version None)
Quarter: 2010Q2

REPORT INFORMATION
  Report Type: 
  Country: None (occurrence: None)
  Receive Date: 20100521
  Receipt Date: 20100510
  Transmission Date: 20101027
  Serious: Yes (Hospitalization)
  Sender: FDA-Public Use
  Company Number: 2010AL002810

PATIENT
  Sex: Male

DRUGS (1)
  1. TRAMADOL HYDROCHLORIDE [Suspect]
     Indication: KNEE ARTHROPLASTY
     Dosage: 50 MG;

REACTIONS (4)
  - MALAISE [None]
  - MENTAL DISORDER [None]
  - REFUSAL OF TREATMENT BY PATIENT [None]
  - UNEVALUABLE EVENT [None]
